FAERS Safety Report 7281562-6 (Version None)
Quarter: 2011Q1

REPORT INFORMATION
  Report Type: 
  Country: None (occurrence: None)
  Receive Date: 20110208
  Receipt Date: 20110207
  Transmission Date: 20110831
  Serious: Yes (Other)
  Sender: FDA-Public Use
  Company Number: US-PFIZER INC-2011027367

PATIENT
  Sex: Female
  Weight: 67.1 kg

DRUGS (3)
  1. SUTENT [Suspect]
     Indication: ADENOCARCINOMA
     Dosage: UNK
     Dates: start: 20110101
  2. XANAX [Concomitant]
     Indication: ANXIETY
     Dosage: 1 MG, 1X/DAY
  3. ACETAMINOPHEN AND HYDROCODONE BITARTRATE [Concomitant]
     Indication: PAIN
     Dosage: 10/500MG

REACTIONS (5)
  - WEIGHT DECREASED [None]
  - GLOSSODYNIA [None]
  - RASH [None]
  - THROAT IRRITATION [None]
  - DYSPHAGIA [None]
